FAERS Safety Report 19856774 (Version 22)
Quarter: 2025Q4

REPORT INFORMATION
  Report Type: Report from Study
  Country: US (occurrence: US)
  Receive Date: 20210920
  Receipt Date: 20251208
  Transmission Date: 20260118
  Serious: Yes (Hospitalization, Other)
  Sender: TAKEDA
  Company Number: US-SHIRE-US201727044

PATIENT
  Age: 67 Year
  Sex: Female

DRUGS (8)
  1. HUMAN IMMUNOGLOBULIN G [Suspect]
     Active Substance: HUMAN IMMUNOGLOBULIN G
     Indication: Primary immunodeficiency syndrome
     Dosage: UNK
  2. HUMAN IMMUNOGLOBULIN G [Suspect]
     Active Substance: HUMAN IMMUNOGLOBULIN G
     Indication: Immunodeficiency common variable
  3. XEMBIFY [Suspect]
     Active Substance: HUMAN IMMUNOGLOBULIN G
     Indication: Primary immunodeficiency syndrome
     Dosage: UNK
  4. XEMBIFY [Suspect]
     Active Substance: HUMAN IMMUNOGLOBULIN G
     Indication: Immunodeficiency common variable
  5. CUTAQUIG [Suspect]
     Active Substance: HUMAN IMMUNOGLOBULIN G
     Indication: Immunodeficiency common variable
     Dosage: UNK
  6. CUTAQUIG [Suspect]
     Active Substance: HUMAN IMMUNOGLOBULIN G
     Indication: Primary immunodeficiency syndrome
  7. TIRZEPATIDE [Suspect]
     Active Substance: TIRZEPATIDE
     Indication: Product used for unknown indication
     Dosage: UNK
  8. MOUNJARO [Suspect]
     Active Substance: TIRZEPATIDE
     Indication: Product used for unknown indication
     Dosage: UNK

REACTIONS (42)
  - Supraventricular tachycardia [Unknown]
  - Coagulopathy [Unknown]
  - Syncope [Unknown]
  - Tachycardia [Recovering/Resolving]
  - Cardiac disorder [Unknown]
  - Weight increased [Unknown]
  - Injection site bruising [Unknown]
  - Gastrooesophageal reflux disease [Unknown]
  - Stress [Unknown]
  - Hiatus hernia [Unknown]
  - Umbilical hernia [Unknown]
  - Sleep disorder [Unknown]
  - Accident [Unknown]
  - Skin laceration [Unknown]
  - Weight decreased [Recovering/Resolving]
  - Injection site discharge [Unknown]
  - Hypoacusis [Unknown]
  - Needle issue [Unknown]
  - Insurance issue [Unknown]
  - Socioeconomic precarity [Unknown]
  - Joint injury [Recovering/Resolving]
  - Fall [Recovering/Resolving]
  - Inappropriate schedule of product administration [Unknown]
  - Product dose omission issue [Unknown]
  - Device difficult to use [Unknown]
  - Osteoarthritis [Unknown]
  - Infusion site mass [Unknown]
  - Asthma [Unknown]
  - Palpitations [Unknown]
  - Feeling abnormal [Unknown]
  - Anxiety [Not Recovered/Not Resolved]
  - Pain [Not Recovered/Not Resolved]
  - Back pain [Unknown]
  - Fatigue [Unknown]
  - Arthralgia [Unknown]
  - Chronic fatigue syndrome [Unknown]
  - Rhinitis [Unknown]
  - Upper-airway cough syndrome [Recovering/Resolving]
  - Blood cholesterol increased [Unknown]
  - Gastrooesophageal reflux disease [Unknown]
  - Peripheral venous disease [Unknown]
  - Spider vein [Unknown]

NARRATIVE: CASE EVENT DATE: 20240227
